FAERS Safety Report 22397908 (Version 3)
Quarter: 2023Q2

REPORT INFORMATION
  Report Type: Report from Study
  Country: NL (occurrence: None)
  Receive Date: 20230602
  Receipt Date: 20230627
  Transmission Date: 20230721
  Serious: Yes (Hospitalization)
  Sender: FDA-Public Use
  Company Number: NL-ROCHE-3357744

PATIENT
  Age: 54 Year
  Sex: Female

DRUGS (18)
  1. ATEZOLIZUMAB [Suspect]
     Active Substance: ATEZOLIZUMAB
     Indication: Neoplasm
     Dosage: MOST CURRENT TREATMENT ADMINISTRATION: 19/MAY/2023
     Route: 041
     Dates: start: 20230224
  2. BEVACIZUMAB [Suspect]
     Active Substance: BEVACIZUMAB
     Indication: Neoplasm
     Dosage: MOST CURRENT TREATMENT ADMINISTRATION: 19/MAY/2023
     Route: 042
     Dates: start: 20230224
  3. TEMAZEPAM [Concomitant]
     Active Substance: TEMAZEPAM
     Route: 048
  4. POLYETHYLENE GLYCOLS [Concomitant]
     Active Substance: POLYETHYLENE GLYCOLS
  5. FENTANYL [Concomitant]
     Active Substance: FENTANYL
     Route: 060
  6. METOCLOPRAMIDE [Concomitant]
     Active Substance: METOCLOPRAMIDE
  7. SULFASALAZINE [Concomitant]
     Active Substance: SULFASALAZINE
  8. SPIRONOLACTONE [Concomitant]
     Active Substance: SPIRONOLACTONE
  9. OMEPRAZOLE [Concomitant]
     Active Substance: OMEPRAZOLE
  10. HYDROCHLOROTHIAZIDE [Concomitant]
     Active Substance: HYDROCHLOROTHIAZIDE
  11. DEXAMETHASONE [Concomitant]
     Active Substance: DEXAMETHASONE
     Route: 048
  12. HYDROXOCOBALAMIN [Concomitant]
     Active Substance: HYDROXOCOBALAMIN
  13. FAMOTIDINE [Concomitant]
     Active Substance: FAMOTIDINE
  14. ENALAPRIL [Concomitant]
     Active Substance: ENALAPRIL
  15. METOPROLOL [Concomitant]
     Active Substance: METOPROLOL
  16. AMLODIPINE [Concomitant]
     Active Substance: AMLODIPINE BESYLATE
  17. OXAZEPAM [Concomitant]
     Active Substance: OXAZEPAM
  18. PREDNISOLONE [Concomitant]
     Active Substance: PREDNISOLONE

REACTIONS (2)
  - Renal impairment [Recovered/Resolved]
  - Hypertension [Recovered/Resolved]

NARRATIVE: CASE EVENT DATE: 20230525
